FAERS Safety Report 9645243 (Version 1)
Quarter: 2013Q4

REPORT INFORMATION
  Report Type: Spontaneous
  Country: US (occurrence: None)
  Receive Date: 20131023
  Receipt Date: 20131023
  Transmission Date: 20140711
  Serious: No
  Sender: FDA-Public Use
  Company Number: None

PATIENT
  Age: 81 Year
  Sex: Male
  Weight: 86.18 kg

DRUGS (8)
  1. FLUOROURACIL 5% CRE QTY 40 1X PER DAY OCEANSIDE PHARMACEUTICALS [Suspect]
     Indication: SKIN CANCER
     Dosage: 5% 1 APPLICATION PER DAY AT BEDTIME RUBBED ON FACE, EARS AND BEHIND EAR.
     Dates: start: 20130905, end: 20131003
  2. ALLOPURINOL [Concomitant]
  3. SIMVASTATIN [Concomitant]
  4. MONTELUKAST [Concomitant]
  5. LISINOPRIL [Concomitant]
  6. OMEPRAZOLE [Concomitant]
  7. ALPRAZOLAM [Concomitant]
  8. ASPIRIN [Concomitant]

REACTIONS (3)
  - Pain [None]
  - Insomnia [None]
  - Burning sensation [None]
